FAERS Safety Report 14240824 (Version 5)
Quarter: 2019Q2

REPORT INFORMATION
  Report Type: Report from Study
  Country: CA (occurrence: CA)
  Receive Date: 20171130
  Receipt Date: 20190409
  Transmission Date: 20190711
  Serious: Yes (Hospitalization, Other)
  Sender: FDA-Public Use
  Company Number: CA-BRISTOL-MYERS SQUIBB COMPANY-BMS-2017-104709

PATIENT
  Age: 79 Year
  Sex: Female

DRUGS (1)
  1. ABATACEPT [Suspect]
     Active Substance: ABATACEPT
     Indication: RHEUMATOID ARTHRITIS
     Dosage: 750 MG, Q4WK
     Route: 042
     Dates: start: 20150708

REACTIONS (8)
  - Arthralgia [Unknown]
  - Joint swelling [Unknown]
  - Urinary tract infection [Recovering/Resolving]
  - Heart rate increased [Unknown]
  - Bronchitis [Not Recovered/Not Resolved]
  - Sepsis [Unknown]
  - Atrial fibrillation [Unknown]
  - Pulmonary fibrosis [Unknown]

NARRATIVE: CASE EVENT DATE: 20190328
